FAERS Safety Report 6114746-0 (Version None)
Quarter: 2009Q1

REPORT INFORMATION
  Report Type: 
  Country: None (occurrence: None)
  Receive Date: 20090313
  Receipt Date: 20090311
  Transmission Date: 20090719
  Serious: Yes (Death)
  Sender: FDA-Public Use
  Company Number: PHEH2008US10469

PATIENT
  Age: 50 Year
  Sex: Male

DRUGS (2)
  1. ZOMETA [Suspect]
     Indication: METASTASES TO BONE
     Dosage: 4 MG, UNK
     Route: 042
  2. ZOMETA [Suspect]
     Indication: HYPERCALCAEMIA

REACTIONS (2)
  - HEAD AND NECK CANCER [None]
  - METASTATIC NEOPLASM [None]
